FAERS Safety Report 9486092 (Version 2)
Quarter: 2013Q3

REPORT INFORMATION
  Report Type: Spontaneous
  Country: US (occurrence: None)
  Receive Date: 20130826
  Receipt Date: 20130909
  Transmission Date: 20140515
  Serious: Yes (Other)
  Sender: FDA-Public Use
  Company Number: 2013080124

PATIENT
  Age: 37 Year
  Sex: Male
  Weight: 63.5 kg

DRUGS (1)
  1. VIVARIN [Suspect]
     Indication: FATIGUE
     Route: 048
     Dates: start: 20130813, end: 20130813

REACTIONS (7)
  - Dyspnoea [None]
  - Gastritis [None]
  - Heart rate increased [None]
  - Hyperhidrosis [None]
  - Hyperhidrosis [None]
  - Ulcer [None]
  - Vomiting [None]
